FAERS Safety Report 4560321-9 (Version None)
Quarter: 2005Q1

REPORT INFORMATION
  Report Type: 
  Country: None (occurrence: None)
  Receive Date: 20050119
  Receipt Date: 20050119
  Transmission Date: 20050727
  Serious: Yes (Other)
  Sender: FDA-Public Use
  Company Number: None

PATIENT
  Age: 58 Year
  Sex: Male
  Weight: 108 kg

DRUGS (1)
  1. LOVASTATIN [Suspect]
     Indication: LIPIDS INCREASED
     Dosage: 40 MG QD PO
     Route: 048
     Dates: start: 20031001, end: 20040701

REACTIONS (1)
  - ERECTILE DYSFUNCTION [None]
